FAERS Safety Report 11993839 (Version 1)
Quarter: 2016Q1

REPORT INFORMATION
  Report Type: Spontaneous
  Country: JP (occurrence: JP)
  Receive Date: 20160203
  Receipt Date: 20160203
  Transmission Date: 20160526
  Serious: Yes (Death, Other)
  Sender: FDA-Public Use
  Company Number: JP-ASTRAZENECA-2016SE10975

PATIENT
  Age: 45 Year
  Sex: Female

DRUGS (5)
  1. AZTREONAM. [Suspect]
     Active Substance: AZTREONAM
     Indication: CHOLECYSTITIS
     Route: 041
     Dates: start: 20151216, end: 20151225
  2. MEROPEN [Suspect]
     Active Substance: MEROPENEM
     Indication: CHOLECYSTITIS
     Route: 041
     Dates: end: 20151225
  3. TYGACIL [Suspect]
     Active Substance: TIGECYCLINE
     Indication: CHOLECYSTITIS
     Route: 041
     Dates: start: 20151215, end: 20151215
  4. TYGACIL [Suspect]
     Active Substance: TIGECYCLINE
     Indication: CHOLECYSTITIS
     Route: 041
     Dates: start: 20151214, end: 20151214
  5. COLISTIN MESILATE SODIUM [Suspect]
     Active Substance: COLISTIMETHATE SODIUM
     Indication: CHOLECYSTITIS
     Route: 041
     Dates: end: 20151216

REACTIONS (4)
  - Drug ineffective [Unknown]
  - Condition aggravated [Fatal]
  - Post procedural complication [None]
  - Off label use [Unknown]

NARRATIVE: CASE EVENT DATE: 201512
